FAERS Safety Report 20873426 (Version 1)
Quarter: 2022Q2

REPORT INFORMATION
  Report Type: Report from Study
  Country: US (occurrence: US)
  Receive Date: 20220525
  Receipt Date: 20220525
  Transmission Date: 20220721
  Serious: Yes (Hospitalization)
  Sender: FDA-Public Use
  Company Number: US-TAKEDA-2022TUS033970

PATIENT
  Sex: Female
  Weight: 57.6 kg

DRUGS (27)
  1. HUMAN IMMUNOGLOBULIN G [Suspect]
     Active Substance: HUMAN IMMUNOGLOBULIN G
     Indication: Immunodeficiency common variable
     Dosage: 8 GRAM, 1/WEEK
     Route: 058
     Dates: start: 20210206
  2. DIPHENHYDRAMINE [Concomitant]
     Active Substance: DIPHENHYDRAMINE
  3. PROBIOTICS NOS [Concomitant]
     Active Substance: PROBIOTICS NOS
  4. VITAMIN D3 [Concomitant]
     Active Substance: CHOLECALCIFEROL
  5. FLURANDRENOLIDE [Concomitant]
     Active Substance: FLURANDRENOLIDE
  6. ESTRADIOL [Concomitant]
     Active Substance: ESTRADIOL
  7. EPINEPHRINE [Concomitant]
     Active Substance: EPINEPHRINE
  8. TRETINOIN [Concomitant]
     Active Substance: TRETINOIN
  9. MAGNESIUM [Concomitant]
     Active Substance: MAGNESIUM
  10. DEXILANT [Concomitant]
     Active Substance: DEXLANSOPRAZOLE
  11. FLUTICASONE PROPIONATE [Concomitant]
     Active Substance: FLUTICASONE PROPIONATE
  12. HYDROXYCHLOROQUINE SULFATE [Concomitant]
     Active Substance: HYDROXYCHLOROQUINE SULFATE
  13. CALCIUM CITRATE [Concomitant]
     Active Substance: CALCIUM CITRATE
  14. CALCITONIN SALMON [Concomitant]
     Active Substance: CALCITONIN SALMON
  15. ZYRTEC [Concomitant]
     Active Substance: CETIRIZINE HYDROCHLORIDE
  16. PROVENTIL HFA [Concomitant]
     Active Substance: ALBUTEROL SULFATE
  17. BACLOFEN [Concomitant]
     Active Substance: BACLOFEN
  18. ACETAMINOPHEN [Concomitant]
     Active Substance: ACETAMINOPHEN
  19. ORENCIA [Concomitant]
     Active Substance: ABATACEPT
  20. AZELASTINE HYDROCHLORIDE [Concomitant]
     Active Substance: AZELASTINE HYDROCHLORIDE
  21. LEVOTHYROXINE SODIUM [Concomitant]
     Active Substance: LEVOTHYROXINE SODIUM
  22. NITROGLYCERIN [Concomitant]
     Active Substance: NITROGLYCERIN
  23. VASCEPA [Concomitant]
     Active Substance: ICOSAPENT ETHYL
  24. POTASSIUM CITRATE [Concomitant]
     Active Substance: POTASSIUM CITRATE
  25. LIDOCAINE [Concomitant]
     Active Substance: LIDOCAINE
  26. MUPIROCIN [Concomitant]
     Active Substance: MUPIROCIN
  27. DILTIAZEM [Concomitant]
     Active Substance: DILTIAZEM

REACTIONS (1)
  - Gastrointestinal infection [Unknown]
